FAERS Safety Report 8880985 (Version 2)
Quarter: 2012Q4

REPORT INFORMATION
  Report Type: Report from Study
  Country: JP (occurrence: JP)
  Receive Date: 20121101
  Receipt Date: 20121102
  Transmission Date: 20130627
  Serious: Yes (Hospitalization)
  Sender: FDA-Public Use
  Company Number: JP-PFIZER INC-2012265635

PATIENT
  Age: 83 Year
  Sex: Male
  Weight: 79.6 kg

DRUGS (13)
  1. SUTENT [Suspect]
     Indication: RENAL CELL CARCINOMA
     Dosage: 50 mg, 1x/day
     Route: 048
     Dates: start: 20081114, end: 20081204
  2. SUTENT [Suspect]
     Dosage: 37.5 mg, 1x/day
     Route: 048
     Dates: start: 20081226, end: 20090109
  3. SUTENT [Suspect]
     Dosage: 25 mg, 1x/day
     Route: 048
     Dates: start: 20090213, end: 20090312
  4. SUTENT [Suspect]
     Dosage: 25 mg, 1x/day
     Route: 048
     Dates: start: 20090327, end: 20090423
  5. SUTENT [Suspect]
     Dosage: 25 mg, 1x/day
     Route: 048
     Dates: start: 20090508, end: 20090604
  6. SUTENT [Suspect]
     Dosage: 25 mg, 1x/day
     Route: 048
     Dates: start: 20090619, end: 20090716
  7. ALOSITOL [Concomitant]
     Dosage: 100 mg, 1x/day
     Route: 048
  8. LASIX [Concomitant]
     Dosage: 20 mg, 1x/day
     Route: 048
  9. OLMETEC [Concomitant]
     Dosage: 20 mg, 1x/day
     Route: 048
  10. ACECOL [Concomitant]
     Dosage: 2 mg, 1x/day
     Route: 048
  11. GASTER [Concomitant]
     Dosage: 20 mg, 1x/day
     Route: 048
  12. BAYASPIRIN [Concomitant]
     Dosage: 100 mg, 1x/day
     Route: 048
  13. ADALAT [Concomitant]
     Dosage: 40 mg, 1x/day
     Route: 048
     Dates: start: 20081127

REACTIONS (2)
  - Pyrexia [Recovered/Resolved]
  - Malaise [Recovered/Resolved]
